FAERS Safety Report 18773545 (Version 1)
Quarter: 2021Q1

REPORT INFORMATION
  Report Type: Spontaneous
  Country: US (occurrence: US)
  Receive Date: 20210121
  Receipt Date: 20210121
  Transmission Date: 20210419
  Serious: Yes (Death)
  Sender: FDA-Public Use
  Company Number: None

PATIENT
  Age: 71 Year
  Sex: Female

DRUGS (28)
  1. NORCO [Concomitant]
     Active Substance: ACETAMINOPHEN\HYDROCODONE BITARTRATE
  2. VITAMIN D3 [Concomitant]
     Active Substance: CHOLECALCIFEROL
  3. TRAMADOL. [Concomitant]
     Active Substance: TRAMADOL
  4. RENVELA [Concomitant]
     Active Substance: SEVELAMER CARBONATE
  5. CALCITRIOL. [Concomitant]
     Active Substance: CALCITRIOL
  6. COLCHICINE. [Concomitant]
     Active Substance: COLCHICINE
  7. MAGNESIUM OXIDE. [Concomitant]
     Active Substance: MAGNESIUM OXIDE
  8. CLOBENZAPRINE [Concomitant]
  9. MIDODRINE [Concomitant]
     Active Substance: MIDODRINE
  10. ZOFRAN [Concomitant]
     Active Substance: ONDANSETRON HYDROCHLORIDE
  11. HUMULIN R [Concomitant]
     Active Substance: INSULIN HUMAN
  12. LEVOTHYROXINE. [Concomitant]
     Active Substance: LEVOTHYROXINE
  13. RENA?VITE [Concomitant]
     Active Substance: ASCORBIC ACID\BIOTIN\CALCIUM PANTOTHENATE\CYANOCOBALAMIN\FOLIC ACID\NIACINAMIDE\PYRIDOXINE HYDROCHLORIDE\RIBOFLAVIN\THIAMINE MONONITRATE
  14. MELATONIN [Concomitant]
     Active Substance: MELATONIN
  15. OPSUMIT [Suspect]
     Active Substance: MACITENTAN
     Indication: PULMONARY HYPERTENSION
     Route: 048
     Dates: start: 20181219, end: 202101
  16. PANTOPRAZOLE [Concomitant]
     Active Substance: PANTOPRAZOLE
  17. DOCUSATE SODIUM. [Concomitant]
     Active Substance: DOCUSATE SODIUM
  18. EPOGEN [Concomitant]
     Active Substance: ERYTHROPOIETIN
  19. ELIQUIS [Concomitant]
     Active Substance: APIXABAN
  20. ALBUTEROL HFA [Concomitant]
     Active Substance: ALBUTEROL SULFATE
  21. CINACALCET. [Concomitant]
     Active Substance: CINACALCET
  22. MVI?BIOTIN [Concomitant]
  23. ADVAIR DISKU [Concomitant]
  24. FLONASE [Concomitant]
     Active Substance: FLUTICASONE PROPIONATE
  25. GABAPENTIN. [Concomitant]
     Active Substance: GABAPENTIN
  26. TORSEMIDE. [Concomitant]
     Active Substance: TORSEMIDE
  27. ALLOPURINOL. [Concomitant]
     Active Substance: ALLOPURINOL
  28. DOXYCYCLINE. [Concomitant]
     Active Substance: DOXYCYCLINE

REACTIONS (3)
  - General physical health deterioration [None]
  - Asthenia [None]
  - Peripheral swelling [None]

NARRATIVE: CASE EVENT DATE: 20210117
